FAERS Safety Report 4927107-4 (Version None)
Quarter: 2006Q1

REPORT INFORMATION
  Report Type: 
  Country: None (occurrence: None)
  Receive Date: 20060222
  Receipt Date: 20060209
  Transmission Date: 20060701
  Serious: Yes (Hospitalization, Other)
  Sender: FDA-Public Use
  Company Number: SUS1-2006-00155

PATIENT
  Age: 29 Year
  Sex: Male
  Weight: 111.1 kg

DRUGS (3)
  1. ADDERALL XR 30 [Suspect]
     Indication: ATTENTION DEFICIT/HYPERACTIVITY DISORDER
     Dosage: SEE IMAGE
     Dates: start: 20050101, end: 20050101
  2. ADDERALL XR 30 [Suspect]
     Indication: ATTENTION DEFICIT/HYPERACTIVITY DISORDER
     Dosage: SEE IMAGE
     Dates: start: 20040101, end: 20051201
  3. WELLBUTRIN /00700501/(BUPROPION) [Concomitant]

REACTIONS (6)
  - AGGRESSION [None]
  - DRUG ABUSER [None]
  - PRESCRIBED OVERDOSE [None]
  - PSYCHOTIC DISORDER [None]
  - VERBAL ABUSE [None]
  - WEIGHT DECREASED [None]
